FAERS Safety Report 17468659 (Version 2)
Quarter: 2020Q1

REPORT INFORMATION
  Report Type: Report from Study
  Country: US (occurrence: US)
  Receive Date: 20200227
  Receipt Date: 20200319
  Transmission Date: 20200409
  Serious: No
  Sender: FDA-Public Use
  Company Number: US-SA-2020SA036420

PATIENT
  Age: 38 Year
  Sex: Female

DRUGS (2)
  1. ALEMTUZUMAB [Suspect]
     Active Substance: ALEMTUZUMAB
     Indication: MULTIPLE SCLEROSIS
     Dosage: 12 MG, QD
     Route: 041
     Dates: start: 20200203, end: 20200206
  2. DIPHENHYDRAMINE HYDROCHLORIDE. [Suspect]
     Active Substance: DIPHENHYDRAMINE HYDROCHLORIDE

REACTIONS (16)
  - Bronchitis [Not Recovered/Not Resolved]
  - Infusion site infection [Recovered/Resolved]
  - Inappropriate schedule of product administration [Unknown]
  - Infusion site extravasation [Recovered/Resolved]
  - Wheezing [Not Recovered/Not Resolved]
  - Pyrexia [Unknown]
  - Cough [Not Recovered/Not Resolved]
  - Nasopharyngitis [Not Recovered/Not Resolved]
  - Full blood count increased [Unknown]
  - Slow response to stimuli [Unknown]
  - Headache [Recovered/Resolved]
  - Phlebitis [Unknown]
  - Chest discomfort [Not Recovered/Not Resolved]
  - Bronchospasm [Not Recovered/Not Resolved]
  - Infusion site erythema [Unknown]
  - Hypersomnia [Unknown]

NARRATIVE: CASE EVENT DATE: 202002
